FAERS Safety Report 8559456 (Version 4)
Quarter: 2013Q4

REPORT INFORMATION
  Report Type: Report from Study
  Country: US (occurrence: US)
  Receive Date: 20120513
  Receipt Date: 20131203
  Transmission Date: 20140711
  Serious: Yes (Other)
  Sender: FDA-Public Use
  Company Number: US-ELI_LILLY_AND_COMPANY-US201110005778

PATIENT
  Age: 49 Year
  Sex: Female

DRUGS (4)
  1. TERIPARATIDE [Suspect]
     Indication: SENILE OSTEOPOROSIS
     Dosage: 20 UG, QD
     Route: 065
     Dates: start: 20110922, end: 201310
  2. TERIPARATIDE [Suspect]
     Indication: MULTIPLE FRACTURES
  3. CALCIUM [Concomitant]
     Indication: PRODUCT USED FOR UNKNOWN INDICATION
     Route: 065
  4. VITAMIN D [Concomitant]
     Indication: PRODUCT USED FOR UNKNOWN INDICATION
     Route: 065

REACTIONS (17)
  - Pelvic fracture [Unknown]
  - Pelvic fracture [Unknown]
  - Cerebrovascular accident [Unknown]
  - Cardiac disorder [Unknown]
  - Pain in extremity [Unknown]
  - Anxiety [Unknown]
  - Pain [Unknown]
  - Nausea [Unknown]
  - Fracture [Unknown]
  - Injection site pain [Unknown]
  - Hypoaesthesia [Unknown]
  - Vitamin D decreased [Unknown]
  - Blood calcium increased [Unknown]
  - Foot fracture [Unknown]
  - Bone density decreased [Unknown]
  - Lower limb fracture [Unknown]
  - Lower limb fracture [Unknown]
